FAERS Safety Report 17926338 (Version 3)
Quarter: 2021Q3

REPORT INFORMATION
  Report Type: Spontaneous
  Country: US (occurrence: US)
  Receive Date: 20200622
  Receipt Date: 20210701
  Transmission Date: 20211014
  Serious: Yes (Disabling)
  Sender: FDA-Public Use
  Company Number: US-TEVA-2020-US-1789040

PATIENT
  Age: 42 Year
  Sex: Female
  Weight: 90.8 kg

DRUGS (27)
  1. METOPROLOL SUCCINATE. [Concomitant]
     Active Substance: METOPROLOL SUCCINATE
     Route: 048
     Dates: start: 2011
  2. VITAMIN D3 [Concomitant]
     Active Substance: CHOLECALCIFEROL
     Route: 048
  3. TYLENOL WITH CODEINE [Concomitant]
     Active Substance: ACETAMINOPHEN\CODEINE PHOSPHATE
     Route: 065
     Dates: start: 20140403, end: 20140430
  4. DOCETAXEL SAGENT [Suspect]
     Active Substance: DOCETAXEL
     Dosage: 4 CYCLES, EVERY 3 WEKS
     Route: 065
     Dates: start: 20140428, end: 20140630
  5. DOCETAXEL WINTHROP [Suspect]
     Active Substance: DOCETAXEL
     Indication: INVASIVE DUCTAL BREAST CARCINOMA
     Dosage: 4 CYCLES, EVERY 3 WEEKS
     Route: 065
     Dates: start: 20140428, end: 20140630
  6. AMLODIPINE [Concomitant]
     Active Substance: AMLODIPINE BESYLATE
     Dosage: 1/2
     Route: 065
     Dates: start: 20130711
  7. NOVOLOG [Concomitant]
     Active Substance: INSULIN ASPART
     Dosage: 70/30 224 +154, AM/PM
     Route: 065
     Dates: start: 20140221
  8. ROGAINE [Concomitant]
     Active Substance: MINOXIDIL
     Route: 065
     Dates: start: 20080101
  9. AQUAPHOR [Concomitant]
     Active Substance: PETROLATUM
     Route: 065
  10. SIMVASTATIN. [Concomitant]
     Active Substance: SIMVASTATIN
     Route: 048
  11. HYDRALAZINE [Concomitant]
     Active Substance: HYDRALAZINE HYDROCHLORIDE
     Route: 065
     Dates: start: 20130711
  12. IBUPROFEN. [Concomitant]
     Active Substance: IBUPROFEN
     Route: 065
     Dates: start: 20140609
  13. METOPROLOL SUCCINATE. [Concomitant]
     Active Substance: METOPROLOL SUCCINATE
     Route: 065
     Dates: start: 20130711
  14. TAMOXIFEN [Concomitant]
     Active Substance: TAMOXIFEN
     Route: 048
     Dates: start: 201409, end: 20161207
  15. DOCETAXEL SANDOZ [Suspect]
     Active Substance: DOCETAXEL
     Indication: INVASIVE DUCTAL BREAST CARCINOMA
     Dosage: 4 CYCLES, EVERY 3 WEEKS
     Route: 065
     Dates: start: 20140428, end: 20140630
  16. CYTOXAN [Suspect]
     Active Substance: CYCLOPHOSPHAMIDE
     Indication: INVASIVE DUCTAL BREAST CARCINOMA
     Dosage: ONCE EVERY 3 WEEKS FOR 4 CYCLES
     Route: 065
     Dates: start: 20140428, end: 20140630
  17. HYDRALAZINE [Concomitant]
     Active Substance: HYDRALAZINE HYDROCHLORIDE
     Route: 065
     Dates: start: 20140410, end: 20140915
  18. ISOSORBIDE. [Concomitant]
     Active Substance: ISOSORBIDE
     Route: 065
     Dates: start: 20140410, end: 20141113
  19. DOCETAXEL WINTHROP [Suspect]
     Active Substance: DOCETAXEL
     Dosage: 4 CYCLES, EVERY 3 WEEKS
     Route: 065
     Dates: start: 20140428, end: 20140630
  20. TAXOL [Suspect]
     Active Substance: PACLITAXEL
     Indication: INVASIVE DUCTAL BREAST CARCINOMA
     Route: 065
     Dates: start: 20140428, end: 20140630
  21. ISOSORBIDE. [Concomitant]
     Active Substance: ISOSORBIDE
     Route: 065
     Dates: start: 20130711
  22. AMLODIPINE [Concomitant]
     Active Substance: AMLODIPINE BESYLATE
     Dosage: 0.5 TABLET
     Route: 048
     Dates: start: 2011
  23. ENALAPRIL MALEATE. [Concomitant]
     Active Substance: ENALAPRIL MALEATE
     Route: 048
     Dates: start: 20130711
  24. CASTOR OIL. [Concomitant]
     Active Substance: CASTOR OIL
     Route: 065
     Dates: start: 201409
  25. DOCETAXEL SAGENT [Suspect]
     Active Substance: DOCETAXEL
     Indication: INVASIVE DUCTAL BREAST CARCINOMA
     Dosage: 4 CYCLES, EVERY 3 WEEKS
     Route: 065
     Dates: start: 20140428, end: 20140630
  26. ENALAPRIL MALEATE. [Concomitant]
     Active Substance: ENALAPRIL MALEATE
     Route: 065
     Dates: start: 2011
  27. NOVOLOG [Concomitant]
     Active Substance: INSULIN ASPART
     Dosage: MIX 70?30 FLEXPEN (INSULIN ASPART PROTAMINE HUMAN/INSULIN ASPART) 40 UNITS
     Route: 058
     Dates: start: 20150326, end: 20161207

REACTIONS (14)
  - Alopecia areata [Recovered/Resolved]
  - Hair texture abnormal [Recovered/Resolved]
  - Asthenia [Unknown]
  - Nausea [Unknown]
  - Menopause [Unknown]
  - Alopecia scarring [Unknown]
  - Hair colour changes [Recovered/Resolved]
  - Pain [Unknown]
  - Diarrhoea [Unknown]
  - Madarosis [Unknown]
  - Cancer fatigue [Unknown]
  - Decreased appetite [Recovering/Resolving]
  - Taste disorder [Unknown]
  - Amenorrhoea [Unknown]

NARRATIVE: CASE EVENT DATE: 2014
